FAERS Safety Report 23564090 (Version 1)
Quarter: 2024Q1

REPORT INFORMATION
  Report Type: Spontaneous
  Country: GB (occurrence: GB)
  Receive Date: 20240226
  Receipt Date: 20240226
  Transmission Date: 20240410
  Serious: Yes (Other)
  Sender: FDA-Public Use
  Company Number: GB-JNJFOC-20240254944

PATIENT
  Sex: Male
  Weight: 79 kg

DRUGS (3)
  1. ACETAMINOPHEN [Interacting]
     Active Substance: ACETAMINOPHEN
     Indication: Product used for unknown indication
     Route: 065
  2. BISOPROLOL [Interacting]
     Active Substance: BISOPROLOL\BISOPROLOL FUMARATE
     Indication: Atrial flutter
     Dosage: 1.25MG DAILY
     Route: 065
  3. EDOXABAN [Interacting]
     Active Substance: EDOXABAN
     Indication: Anticoagulant therapy
     Route: 065

REACTIONS (2)
  - Dacryostenosis acquired [Unknown]
  - Drug interaction [Unknown]
